FAERS Safety Report 20235280 (Version 1)
Quarter: 2021Q4

REPORT INFORMATION
  Report Type: Report from Study
  Country: US (occurrence: US)
  Receive Date: 20211228
  Receipt Date: 20211228
  Transmission Date: 20220303
  Serious: Yes (Hospitalization, Other)
  Sender: FDA-Public Use
  Company Number: US-BIOVITRUM-2021US12467

PATIENT
  Sex: Male

DRUGS (3)
  1. DOPTELET [Suspect]
     Active Substance: AVATROMBOPAG MALEATE
     Indication: Acute myeloid leukaemia
     Route: 048
  2. VENCLEXTA [Concomitant]
     Active Substance: VENETOCLAX
  3. REZUROCK [Concomitant]
     Active Substance: BELUMOSUDIL

REACTIONS (10)
  - Pain [Unknown]
  - Delusion [Recovered/Resolved]
  - Gait inability [Unknown]
  - Graft versus host disease [Unknown]
  - Nerve compression [Unknown]
  - Loss of personal independence in daily activities [Unknown]
  - White blood cell count decreased [Unknown]
  - Red blood cell count decreased [Unknown]
  - Platelet count decreased [Unknown]
  - Rash [Unknown]
